FAERS Safety Report 18381317 (Version 1)
Quarter: 2020Q4

REPORT INFORMATION
  Report Type: Spontaneous
  Country: IT (occurrence: IT)
  Receive Date: 20201014
  Receipt Date: 20201014
  Transmission Date: 20210114
  Serious: Yes (Hospitalization)
  Sender: FDA-Public Use
  Company Number: IT-MYLANLABS-2020M1085994

PATIENT
  Age: 5 Year
  Sex: Female

DRUGS (4)
  1. METHOTREXATE. [Suspect]
     Active Substance: METHOTREXATE
     Indication: DERMATOMYOSITIS
     Dosage: 0.8 MILLIGRAM/KILOGRAM, QW
     Route: 065
     Dates: start: 20200310
  2. METHYLPREDNISOLONE. [Suspect]
     Active Substance: METHYLPREDNISOLONE
     Indication: DERMATOMYOSITIS
     Dosage: 25 MILLIGRAM/KILOGRAM
     Route: 065
     Dates: start: 202003, end: 202003
  3. PREDNISONE. [Suspect]
     Active Substance: PREDNISONE
     Indication: DERMATOMYOSITIS
     Dosage: INITIAL DOSAGE NOT STATED
     Route: 065
     Dates: start: 202003
  4. PREDNISONE. [Suspect]
     Active Substance: PREDNISONE
     Dosage: 1.5 MILLIGRAM/KILOGRAM, QD
     Route: 065

REACTIONS (2)
  - Symptom masked [Unknown]
  - COVID-19 [Recovered/Resolved]

NARRATIVE: CASE EVENT DATE: 202003
